FAERS Safety Report 9267161 (Version 3)
Quarter: 2013Q3

REPORT INFORMATION
  Report Type: Report from Study
  Country: AU (occurrence: AU)
  Receive Date: 20130502
  Receipt Date: 20130708
  Transmission Date: 20140515
  Serious: Yes (Hospitalization)
  Sender: FDA-Public Use
  Company Number: AU-AMGEN-AUSCT2013029982

PATIENT
  Sex: 0

DRUGS (3)
  1. PANITUMUMAB [Suspect]
     Indication: BILE DUCT CANCER
     Dosage: 1000 MG, Q3WK
     Route: 042
     Dates: start: 20130404
  2. CISPLATIN [Concomitant]
     Dosage: 50 MG, UNK
     Route: 042
     Dates: start: 20120728
  3. GEMCITABIN [Concomitant]
     Dosage: 2000 MG, UNK
     Route: 042
     Dates: start: 20120728

REACTIONS (1)
  - Diarrhoea [Recovered/Resolved]
